FAERS Safety Report 21004193 (Version 1)
Quarter: 2022Q2

REPORT INFORMATION
  Report Type: Spontaneous
  Country: US (occurrence: None)
  Receive Date: 20220624
  Receipt Date: 20220624
  Transmission Date: 20220721
  Serious: Yes (Other)
  Sender: FDA-Public Use
  Company Number: None

PATIENT
  Age: 42 Year
  Sex: Female
  Weight: 101.25 kg

DRUGS (14)
  1. PAXLOVID [Suspect]
     Active Substance: NIRMATRELVIR\RITONAVIR
     Indication: COVID-19
     Dates: start: 20220615, end: 20220622
  2. EFFEXOR [Concomitant]
     Active Substance: VENLAFAXINE HYDROCHLORIDE
  3. KLONOPIN [Concomitant]
     Active Substance: CLONAZEPAM
  4. SPRINTEC [Concomitant]
     Active Substance: ETHINYL ESTRADIOL\NORGESTIMATE
  5. BUSPAR [Concomitant]
  6. REMERON [Concomitant]
     Active Substance: MIRTAZAPINE
  7. ZYRTEC [Concomitant]
     Active Substance: CETIRIZINE HYDROCHLORIDE
  8. METHOTREXATE [Concomitant]
  9. PREDNISONE [Concomitant]
     Active Substance: PREDNISONE
  10. FOLIC ACID [Concomitant]
     Active Substance: FOLIC ACID
  11. OMEGA 3 [Concomitant]
     Active Substance: CAPSAICIN
  12. C [Concomitant]
  13. D [Concomitant]
  14. VITAMIN B12 [Concomitant]
     Active Substance: CYANOCOBALAMIN

REACTIONS (3)
  - Oropharyngeal pain [None]
  - Ageusia [None]
  - COVID-19 [None]

NARRATIVE: CASE EVENT DATE: 20220622
